FAERS Safety Report 8277623 (Version 2)
Quarter: 2012Q4

REPORT INFORMATION
  Report Type: 
  Country: US (occurrence: US)
  Receive Date: 20111207
  Receipt Date: 20121214
  Transmission Date: 20130627
  Serious: Yes (Hospitalization)
  Sender: FDA-Public Use
  Company Number: US-GENZYME-CAMP-1002031

PATIENT
  Age: 76 Year
  Sex: Male
  Weight: 98.41 kg

DRUGS (1)
  1. CAMPATH [Suspect]
     Indication: CHRONIC LYMPHOCYTIC LEUKAEMIA
     Dosage: 30 mg on days 1, 3, 5, and 8 of cycle
     Route: 042
     Dates: start: 20110815, end: 20110926

REACTIONS (2)
  - Pain [Recovered/Resolved]
  - Lymphadenopathy [Recovered/Resolved]
